FAERS Safety Report 8572950-6 (Version None)
Quarter: 2012Q2

REPORT INFORMATION
  Report Type: 
  Country: None (occurrence: None)
  Receive Date: 20120423
  Receipt Date: 20090105
  Transmission Date: 20120825
  Serious: Yes (Death)
  Sender: FDA-Public Use
  Company Number: PHEH2008US11441

PATIENT
  Age: 68 Year
  Sex: Male

DRUGS (1)
  1. EXJADE [Suspect]
     Indication: MYELODYSPLASTIC SYNDROME
     Dosage: 1625 MG, QD, ORAL
     Route: 048
     Dates: start: 20081008, end: 20081228

REACTIONS (2)
  - MYELODYSPLASTIC SYNDROME [None]
  - DISEASE PROGRESSION [None]
